FAERS Safety Report 25793719 (Version 1)
Quarter: 2025Q3

REPORT INFORMATION
  Report Type: Spontaneous
  Country: EU (occurrence: EU)
  Receive Date: 20250912
  Receipt Date: 20250912
  Transmission Date: 20251021
  Serious: Yes (Hospitalization)
  Sender: ALEXION PHARMACEUTICALS
  Company Number: None

PATIENT
  Age: 65 Year
  Sex: Male
  Weight: 110 kg

DRUGS (4)
  1. CRESTOR [Interacting]
     Active Substance: ROSUVASTATIN CALCIUM
     Indication: Thrombosis prophylaxis
     Dosage: 10 MILLIGRAM, 1/DAY
     Dates: start: 20241001, end: 20250624
  2. VALPROATE SODIUM [Interacting]
     Active Substance: VALPROATE SODIUM
     Indication: Bipolar disorder
     Dosage: 500 MILLIGRAM, 1/DAY
  3. CYAMEMAZINE [Interacting]
     Active Substance: CYAMEMAZINE
     Indication: Bipolar disorder
     Dosage: 25 MILLIGRAM, 2/DAY
  4. OLANZAPINE [Interacting]
     Active Substance: OLANZAPINE
     Indication: Bipolar disorder
     Dosage: 10 MILLIGRAM, 2/DAY

REACTIONS (4)
  - Hepatic cytolysis [Recovered/Resolved]
  - Cholestasis [Recovered/Resolved]
  - Drug interaction [Recovered/Resolved]
  - Accidental overdose [Recovered/Resolved]

NARRATIVE: CASE EVENT DATE: 20241001
